FAERS Safety Report 5363642-5 (Version None)
Quarter: 2007Q2

REPORT INFORMATION
  Report Type: 
  Country: None (occurrence: None)
  Receive Date: 20070618
  Receipt Date: 20070618
  Transmission Date: 20071010
  Serious: Yes (Other)
  Sender: FDA-Public Use
  Company Number: None

PATIENT
  Sex: Female
  Weight: 65.318 kg

DRUGS (2)
  1. PROPOFOL [Suspect]
     Indication: ENDOSCOPY
     Dosage: 190 MG IV BOLUS
     Route: 040
     Dates: start: 20070614, end: 20070614
  2. PROPOFOL [Suspect]
     Indication: SEDATION
     Dosage: 190 MG IV BOLUS
     Route: 040
     Dates: start: 20070614, end: 20070614

REACTIONS (3)
  - CHILLS [None]
  - MYALGIA [None]
  - PYREXIA [None]
